FAERS Safety Report 9633528 (Version 2)
Quarter: 2013Q4

REPORT INFORMATION
  Report Type: Spontaneous
  Country: IT (occurrence: IT)
  Receive Date: 20131021
  Receipt Date: 20131029
  Transmission Date: 20140711
  Serious: Yes (Hospitalization)
  Sender: FDA-Public Use
  Company Number: PHHY2013IT117020

PATIENT
  Sex: Male

DRUGS (4)
  1. VOLTAREN [Suspect]
     Indication: OSTEOARTHRITIS
     Dosage: 150 MG, DAILY
     Route: 048
     Dates: start: 20130901, end: 20131001
  2. VOLTADOL PATCH [Suspect]
     Indication: OSTEOARTHRITIS
     Dosage: 140 MG, DAILY
     Route: 062
     Dates: start: 20130601, end: 20131010
  3. CARDIOASPIRIN [Suspect]
     Indication: PROPHYLAXIS
     Dosage: 100 MG, DAILY
     Route: 048
     Dates: start: 20050101, end: 20131001
  4. ZESTORETIC [Concomitant]
     Indication: HYPERTENSION
     Dosage: 1 DF, UNK
     Route: 048

REACTIONS (3)
  - Drug abuse [Recovering/Resolving]
  - Duodenal ulcer haemorrhage [Recovering/Resolving]
  - Anaemia [Recovering/Resolving]
